FAERS Safety Report 4865098-5 (Version None)
Quarter: 2005Q4

REPORT INFORMATION
  Report Type: 
  Country: None (occurrence: None)
  Receive Date: 20051221
  Receipt Date: 20051221
  Transmission Date: 20060501
  Serious: Yes (Death, Hospitalization)
  Sender: FDA-Public Use
  Company Number: None

PATIENT
  Sex: Female
  Weight: 20 kg

DRUGS (3)
  1. VINBLASTINE SULFATE [Suspect]
     Indication: LYMPHOMA
     Dosage: SEE IMAGE
     Dates: start: 20051116
  2. PREDNISONE [Suspect]
     Dosage: SEE IMAGE
     Dates: start: 20051116, end: 20051120
  3. DOXORUBICIN HCL [Suspect]
     Dosage: SEE IMAGE
     Dates: start: 20051116, end: 20051116

REACTIONS (4)
  - HYPERTENSIVE CRISIS [None]
  - HYPOTENSION [None]
  - PULMONARY HYPERTENSION [None]
  - THERAPEUTIC RESPONSE DECREASED [None]
